FAERS Safety Report 8295549-8 (Version None)
Quarter: 2012Q2

REPORT INFORMATION
  Report Type: 
  Country: None (occurrence: None)
  Receive Date: 20120413
  Receipt Date: 20120327
  Transmission Date: 20120825
  Serious: Yes (Hospitalization)
  Sender: FDA-Public Use
  Company Number: NLSP000320

PATIENT
  Sex: Male

DRUGS (4)
  1. DEXRAZOXANE HYDROCHLORIDE [Suspect]
     Indication: EXTRAVASATION
     Dosage: IV
     Route: 042
     Dates: start: 20120201
  2. DEXRAZOXANE HYDROCHLORIDE [Suspect]
     Indication: EXTRAVASATION
     Dosage: IV
     Route: 042
     Dates: start: 20120125
  3. AUGMENTIN '875' [Concomitant]
  4. CARBAPENEMEM (MEROPENEM) [Concomitant]

REACTIONS (6)
  - NEUTROPENIA [None]
  - INFUSION SITE EXTRAVASATION [None]
  - INFUSION SITE SWELLING [None]
  - INFUSION SITE PAIN [None]
  - INFUSION SITE NECROSIS [None]
  - INFUSION SITE ULCER [None]
